FAERS Safety Report 5221611-X (Version None)
Quarter: 2007Q1

REPORT INFORMATION
  Report Type: 
  Country: None (occurrence: None)
  Receive Date: 20070129
  Receipt Date: 20070125
  Transmission Date: 20070707
  Serious: Yes (Life-Threatening)
  Sender: FDA-Public Use
  Company Number: JP-BAYER-200710069BYL

PATIENT
  Age: 78 Year
  Sex: Male

DRUGS (2)
  1. GLUCOBAY [Suspect]
     Indication: DIABETES MELLITUS
     Dosage: TOTAL DAILY DOSE: 300 MG  UNIT DOSE: 100 MG
     Route: 048
  2. UNKNOWN DRUG [Concomitant]

REACTIONS (1)
  - DRUG ERUPTION [None]
